FAERS Safety Report 9276110 (Version 2)
Quarter: 2013Q3

REPORT INFORMATION
  Report Type: Spontaneous
  Country: FR (occurrence: FR)
  Receive Date: 20130507
  Receipt Date: 20130708
  Transmission Date: 20140515
  Serious: Yes (Other)
  Sender: FDA-Public Use
  Company Number: FR-NAPPMUNDI-GBR-2013-0013849

PATIENT
  Age: 74 Year
  Sex: Male

DRUGS (8)
  1. OXYCONTIN LP 20 MG, COMPRIME PELLICULE A LIBERATION PROLONGEE [Suspect]
     Indication: BACK PAIN
     Dosage: 20 MG, BID
     Route: 048
     Dates: start: 20121227, end: 20130115
  2. OXYNORM 10 MG, GELULE [Suspect]
     Indication: BACK PAIN
     Dosage: 10 MG, Q4H
     Route: 048
     Dates: start: 20121227, end: 20130115
  3. PRAVASTATINE [Concomitant]
     Dosage: 20 MG, DAILY
     Route: 048
  4. METFORMINE [Concomitant]
     Dosage: 500 MG, TID
     Route: 048
  5. BISOPROLOL [Concomitant]
     Dosage: 5 MG, DAILY
     Route: 048
  6. KARDEGIC [Concomitant]
     Dosage: 75 MG, DAILY
     Route: 048
  7. AMLOR [Concomitant]
     Dosage: 75 MG, DAILY
     Route: 048
  8. ELIGARD [Concomitant]
     Dosage: 45 MG, EVERY THREE MONTHS
     Route: 058

REACTIONS (5)
  - Hepatocellular injury [Recovered/Resolved]
  - Cholestasis [Recovered/Resolved]
  - Nausea [Recovered/Resolved]
  - Vomiting [Recovered/Resolved]
  - Hepatitis [Recovered/Resolved]
